FAERS Safety Report 12599038 (Version 4)
Quarter: 2019Q1

REPORT INFORMATION
  Report Type: Report from Study
  Country: DE (occurrence: DE)
  Receive Date: 20160727
  Receipt Date: 20190326
  Transmission Date: 20190417
  Serious: Yes (Hospitalization)
  Sender: FDA-Public Use
  Company Number: DE-BIOGEN-2016BI00269015

PATIENT
  Age: 29 Year
  Sex: Female

DRUGS (7)
  1. TYSABRI [Suspect]
     Active Substance: NATALIZUMAB
     Route: 050
     Dates: start: 20140416
  2. ZOPICLONE [Concomitant]
     Active Substance: ZOPICLONE
     Indication: SLEEP DISORDER
     Route: 050
     Dates: start: 20150818
  3. SPASMEX [Concomitant]
     Route: 050
     Dates: start: 20150525
  4. TYSABRI [Suspect]
     Active Substance: NATALIZUMAB
     Indication: MULTIPLE SCLEROSIS
     Route: 050
     Dates: start: 20080320
  5. KEPPRA [Concomitant]
     Active Substance: LEVETIRACETAM
     Indication: EPILEPSY
     Route: 050
     Dates: start: 20140317
  6. SPASMEX [Concomitant]
     Indication: URINARY INCONTINENCE
     Route: 050
     Dates: start: 20150309, end: 20150524
  7. PROMETHAZINE [Concomitant]
     Active Substance: PROMETHAZINE\PROMETHAZINE HYDROCHLORIDE
     Indication: RESTLESSNESS
     Dosage: AS NEEDED 4 TIMES A DAY
     Route: 050
     Dates: start: 20160316

REACTIONS (5)
  - Abnormal behaviour [Unknown]
  - Depression [Recovered/Resolved with Sequelae]
  - Depression [Unknown]
  - Mental disorder [Unknown]
  - Borderline personality disorder [Unknown]

NARRATIVE: CASE EVENT DATE: 20160308
